FAERS Safety Report 15401667 (Version 1)
Quarter: 2018Q3

REPORT INFORMATION
  Report Type: Spontaneous
  Country: US (occurrence: US)
  Receive Date: 20180914
  Receipt Date: 20180914
  Transmission Date: 20181010
  Serious: Yes (Other)
  Sender: FDA-Public Use
  Company Number: None

PATIENT
  Age: 5 Year
  Sex: Female
  Weight: 18.9 kg

DRUGS (3)
  1. MIRALAX [Concomitant]
     Active Substance: POLYETHYLENE GLYCOL 3350
  2. ENALAPRIL [Concomitant]
     Active Substance: ENALAPRIL
  3. GELNIQUE [Suspect]
     Active Substance: OXYBUTYNIN
     Indication: URINARY INCONTINENCE
     Dosage: ?          QUANTITY:1 SACHET;?
     Route: 061
     Dates: start: 20180820, end: 20180914

REACTIONS (12)
  - Ocular hyperaemia [None]
  - Lip blister [None]
  - Swelling face [None]
  - Pruritus generalised [None]
  - Epistaxis [None]
  - Nasal dryness [None]
  - Dry mouth [None]
  - Dry eye [None]
  - Lip erythema [None]
  - Eyelid margin crusting [None]
  - Flushing [None]
  - Lip exfoliation [None]

NARRATIVE: CASE EVENT DATE: 20180914
